FAERS Safety Report 17873054 (Version 3)
Quarter: 2020Q2

REPORT INFORMATION
  Report Type: Spontaneous
  Country: US (occurrence: US)
  Receive Date: 20200608
  Receipt Date: 20200624
  Transmission Date: 20200714
  Serious: Yes (Death, Other)
  Sender: FDA-Public Use
  Company Number: US-GILEAD-2020-0470425

PATIENT
  Age: 45 Year
  Sex: Male
  Weight: 125 kg

DRUGS (1)
  1. REMDESIVIR. [Suspect]
     Active Substance: REMDESIVIR
     Indication: COVID-19
     Dosage: 100 MG, QD
     Route: 042
     Dates: start: 20200524, end: 20200528

REACTIONS (5)
  - Vomiting [Unknown]
  - Hypoxia [Fatal]
  - Cardiac arrest [Fatal]
  - Blood creatinine increased [Unknown]
  - Respiratory failure [Fatal]

NARRATIVE: CASE EVENT DATE: 20200528
